FAERS Safety Report 23134661 (Version 2)
Quarter: 2023Q4

REPORT INFORMATION
  Report Type: Spontaneous
  Country: US (occurrence: US)
  Receive Date: 20231101
  Receipt Date: 20231113
  Transmission Date: 20240110
  Serious: Yes (Hospitalization)
  Sender: FDA-Public Use
  Company Number: US-TEVA-2023-US-2940174

PATIENT
  Age: 18 Year
  Sex: Male

DRUGS (1)
  1. OXYCODONE [Suspect]
     Active Substance: OXYCODONE
     Indication: Drug abuse
     Dosage: 15MG
     Route: 048

REACTIONS (2)
  - Acute disseminated encephalomyelitis [Recovering/Resolving]
  - Drug abuse [Unknown]
